FAERS Safety Report 8260912-8 (Version None)
Quarter: 2012Q2

REPORT INFORMATION
  Report Type: 
  Country: None (occurrence: None)
  Receive Date: 20120405
  Receipt Date: 20120329
  Transmission Date: 20120825
  Serious: Yes (Hospitalization)
  Sender: FDA-Public Use
  Company Number: JP-BAYER-2012-029297

PATIENT
  Age: 78 Year
  Sex: Female
  Weight: 53 kg

DRUGS (9)
  1. NEXAVAR [Suspect]
     Indication: HEPATIC NEOPLASM MALIGNANT
     Dosage: DAILY DOSE: 400 MG
     Route: 048
     Dates: start: 20120313, end: 20120320
  2. PROLMON [Concomitant]
     Indication: PROPHYLAXIS
     Dosage: 60 MG, UNK
     Route: 048
  3. JUVELA N [Concomitant]
     Indication: PROPHYLAXIS
     Dosage: 600 MG, UNK
     Route: 048
  4. NORVASC [Concomitant]
     Indication: HYPERTENSION
     Dosage: 5 MG, UNK
     Route: 048
  5. ALFAROL [Concomitant]
     Indication: OSTEOPOROSIS
     Dosage: 1 ?G, UNK
     Route: 048
     Dates: start: 20080101
  6. VALERIN [Concomitant]
     Indication: PROPHYLAXIS
     Dosage: 400 MG, UNK
     Route: 048
  7. URSO 250 [Concomitant]
     Indication: PROPHYLAXIS
     Dosage: 300 MG, UNK
     Route: 048
  8. KM [Concomitant]
     Indication: GASTRITIS PROPHYLAXIS
     Dosage: 3 G, UNK
     Route: 048
  9. EVAMYL [Concomitant]
     Indication: INSOMNIA
     Dosage: 1 MG, PRN
     Route: 048
     Dates: start: 20120320, end: 20120323

REACTIONS (3)
  - MELAENA [None]
  - ABDOMINAL PAIN LOWER [None]
  - COLITIS ISCHAEMIC [None]
